FAERS Safety Report 19674174 (Version 1)
Quarter: 2021Q3

REPORT INFORMATION
  Report Type: Spontaneous
  Country: US (occurrence: US)
  Receive Date: 20210809
  Receipt Date: 20210809
  Transmission Date: 20211014
  Serious: No
  Sender: FDA-Public Use
  Company Number: US-AMGEN INC.-USASP2021119209

PATIENT
  Age: 61 Year
  Sex: Female

DRUGS (3)
  1. IMITREX [Concomitant]
     Active Substance: SUMATRIPTAN SUCCINATE
     Indication: MIGRAINE
     Dosage: UNK
     Route: 065
  2. AIMOVIG [Suspect]
     Active Substance: ERENUMAB-AOOE
     Indication: MIGRAINE PROPHYLAXIS
     Dosage: 140 MILLIGRAM
     Route: 065
  3. TREXIMET [Concomitant]
     Active Substance: NAPROXEN SODIUM\SUMATRIPTAN SUCCINATE
     Indication: MIGRAINE
     Dosage: UNK
     Route: 065

REACTIONS (10)
  - Therapeutic product effect incomplete [Unknown]
  - Wrong technique in product usage process [Unknown]
  - Injection site pain [Unknown]
  - Injection site swelling [Unknown]
  - Off label use [Unknown]
  - Incorrect dose administered [Unknown]
  - Device difficult to use [Unknown]
  - Accidental exposure to product [Unknown]
  - Abdominal discomfort [Unknown]
  - Injection site bruising [Unknown]

NARRATIVE: CASE EVENT DATE: 202106
